FAERS Safety Report 16671755 (Version 1)
Quarter: 2019Q3

REPORT INFORMATION
  Report Type: Spontaneous
  Country: ES (occurrence: ES)
  Receive Date: 20190806
  Receipt Date: 20190806
  Transmission Date: 20191004
  Serious: Yes (Hospitalization, Other)
  Sender: FDA-Public Use
  Company Number: ES-AMGEN-ESPSP2019116314

PATIENT
  Age: 29 Year
  Sex: Male

DRUGS (2)
  1. BLINCYTO [Suspect]
     Active Substance: BLINATUMOMAB
     Indication: ACUTE LYMPHOCYTIC LEUKAEMIA RECURRENT
     Dosage: 9 MICROGRAM PER CUBIC METRE
     Route: 042
     Dates: start: 20190716, end: 201907
  2. BLINCYTO [Suspect]
     Active Substance: BLINATUMOMAB
     Dosage: 28 MICROGRAM PER CUBIC METRE
     Route: 042
     Dates: start: 20190725

REACTIONS (3)
  - Cytokine release syndrome [Recovering/Resolving]
  - Neurotoxicity [Recovering/Resolving]
  - Pancytopenia [Unknown]

NARRATIVE: CASE EVENT DATE: 201907
